FAERS Safety Report 16631605 (Version 1)
Quarter: 2019Q3

REPORT INFORMATION
  Report Type: Spontaneous
  Country: DE (occurrence: DE)
  Receive Date: 20190725
  Receipt Date: 20190725
  Transmission Date: 20191004
  Serious: Yes (Hospitalization)
  Sender: FDA-Public Use
  Company Number: DE-PFIZER INC-2019310341

PATIENT
  Age: 59 Year
  Sex: Female

DRUGS (8)
  1. HYDROCHLOROTHIAZID [Concomitant]
     Active Substance: HYDROCHLOROTHIAZIDE
     Dosage: 25 MG, 1X/DAY (25 MG, 1-0-0-0)
  2. CARBOPLATIN. [Suspect]
     Active Substance: CARBOPLATIN
     Dosage: UNK, (UNIT: MG, LAST DOSE NOT KNOWN)
     Dates: start: 201710
  3. PREGABALIN. [Concomitant]
     Active Substance: PREGABALIN
     Dosage: 25 MG, 2X/DAY (25 MG, 1-0-1-0)
  4. VIGANTOLETTEN [Concomitant]
     Active Substance: CHOLECALCIFEROL
     Dosage: 1000 IU, 1X/DAY (1000 IE, 1-0-0-0)
  5. LACTULOSE. [Concomitant]
     Active Substance: LACTULOSE
     Dosage: 10 ML, 1X/DAY  (10 ML, 1-0-0-0 )
  6. GEMCITABINE HYDROCHLORIDE. [Suspect]
     Active Substance: GEMCITABINE HYDROCHLORIDE
     Dosage: UNK, (UNIT: MG, LAST DOSE NOT KNOWN)
     Dates: start: 201710
  7. LEVOTHYROXINE SODIUM. [Concomitant]
     Active Substance: LEVOTHYROXINE SODIUM
     Dosage: 100 UG, 1X/DAY (100 ?G, 1-0-0-0)
  8. VERAPAMIL [Concomitant]
     Active Substance: VERAPAMIL HYDROCHLORIDE
     Dosage: 80 MG, 2X/DAY (80 MG, 1-0-1-0)

REACTIONS (3)
  - Palpitations [Unknown]
  - Pyrexia [Unknown]
  - Tachycardia [Unknown]
